FAERS Safety Report 4519824-5 (Version None)
Quarter: 2004Q4

REPORT INFORMATION
  Report Type: 
  Country: None (occurrence: None)
  Receive Date: 20041207
  Receipt Date: 20041124
  Transmission Date: 20050328
  Serious: Yes (Death)
  Sender: FDA-Public Use
  Company Number: US-JNJFOC-20040604600

PATIENT
  Sex: Female
  Weight: 115.21 kg

DRUGS (3)
  1. ORTHO EVRA [Suspect]
     Indication: CONTRACEPTION
     Route: 062
  2. COREG [Concomitant]
     Indication: HYPERTENSION
  3. HYDROCHLOROTHIAZIDE [Concomitant]
     Indication: HYPERTENSION

REACTIONS (6)
  - CHOLELITHIASIS [None]
  - HEPATOMEGALY [None]
  - HYPOTENSION [None]
  - HYPOXIA [None]
  - LEIOMYOMA [None]
  - PULMONARY EMBOLISM [None]
